FAERS Safety Report 20511344 (Version 2)
Quarter: 2022Q1

REPORT INFORMATION
  Report Type: Report from Study
  Country: PL (occurrence: None)
  Receive Date: 20220224
  Receipt Date: 20220225
  Transmission Date: 20220423
  Serious: Yes (Life-Threatening, Hospitalization)
  Sender: FDA-Public Use
  Company Number: PL-ROCHE-2870217

PATIENT
  Age: 63 Year
  Sex: Male
  Weight: 99 kg

DRUGS (42)
  1. FARICIMAB [Suspect]
     Active Substance: FARICIMAB
     Indication: Macular oedema
     Dosage: DATE OF MOST RECENT DOSE OF STUDY DRUG PRIOR TO ADVERSE EVENT 14-JUN-2021 4:26 PM?DATE OF MOST RECEN
     Route: 050
     Dates: start: 20210419
  2. FARICIMAB [Suspect]
     Active Substance: FARICIMAB
     Indication: Retinal vein occlusion
  3. FARICIMAB [Suspect]
     Active Substance: FARICIMAB
     Indication: Retinal vein occlusion
  4. PLACEBO [Suspect]
     Active Substance: UNSPECIFIED INGREDIENT
     Indication: Macular oedema
     Dosage: DATE OF MOST RECENT DOSE OF STUDY DRUG PRIOR TO ADVERSE EVENT 14-JUN-2021 4:26 PM?DATE OF MOST RECEN
     Route: 050
     Dates: start: 20210419
  5. POTASSIUM CHLORIDE [Concomitant]
     Active Substance: POTASSIUM CHLORIDE
     Indication: Prophylaxis
     Route: 048
     Dates: start: 20210702
  6. POTASSIUM CHLORIDE [Concomitant]
     Active Substance: POTASSIUM CHLORIDE
     Indication: Hypokalaemia
  7. JANUMET [Concomitant]
     Active Substance: METFORMIN HYDROCHLORIDE\SITAGLIPTIN PHOSPHATE
     Indication: Type 2 diabetes mellitus
     Route: 048
     Dates: start: 201802
  8. GLUCOPHAGE [Concomitant]
     Active Substance: METFORMIN HYDROCHLORIDE
     Indication: Type 2 diabetes mellitus
     Route: 048
     Dates: start: 201802
  9. INDAPAMIDE [Concomitant]
     Active Substance: INDAPAMIDE
     Indication: Hypertension
     Route: 048
     Dates: start: 2010
  10. TULIP (POLAND) [Concomitant]
     Indication: Hypercholesterolaemia
     Route: 048
     Dates: start: 2000, end: 20210610
  11. SYLIMAROL [Concomitant]
     Route: 048
     Dates: start: 2016, end: 20210610
  12. ULGIX [SIMETICONE] [Concomitant]
     Indication: Flatulence
     Route: 048
     Dates: start: 2010, end: 20210810
  13. ZABAK [Concomitant]
     Indication: Conjunctivitis allergic
     Route: 061
     Dates: start: 2018
  14. HYALURONATE SODIUM [Concomitant]
     Active Substance: HYALURONATE SODIUM
     Indication: Dry eye
     Route: 061
     Dates: start: 2010
  15. BISOPROLOL [Concomitant]
     Active Substance: BISOPROLOL
     Indication: Hypertension
     Route: 048
     Dates: start: 20210507
  16. BISOPROLOL [Concomitant]
     Active Substance: BISOPROLOL
     Route: 048
     Dates: start: 2010
  17. BISOPROLOL [Concomitant]
     Active Substance: BISOPROLOL
     Route: 048
     Dates: start: 20210621
  18. ESSENTIALE FORTE [Concomitant]
     Route: 048
     Dates: start: 20210610
  19. VOLTAREN [Concomitant]
     Active Substance: DICLOFENAC SODIUM
     Indication: Osteoarthritis
     Route: 061
     Dates: start: 20210421, end: 20210810
  20. VOLTAREN [Concomitant]
     Active Substance: DICLOFENAC SODIUM
     Indication: Sciatica
     Route: 061
     Dates: start: 20210316, end: 20210430
  21. ACARD [Concomitant]
     Route: 048
     Dates: start: 202101
  22. ETOFENAMATE [Concomitant]
     Active Substance: ETOFENAMATE
     Indication: Osteoarthritis
     Route: 061
     Dates: start: 20210421, end: 20210810
  23. ETOFENAMATE [Concomitant]
     Active Substance: ETOFENAMATE
     Indication: Sciatica
     Route: 061
     Dates: start: 20210316, end: 20210430
  24. DORZOLAMIDE HYDROCHLORIDE\TIMOLOL MALEATE [Concomitant]
     Active Substance: DORZOLAMIDE HYDROCHLORIDE\TIMOLOL MALEATE
     Indication: Intraocular pressure increased
     Route: 047
     Dates: start: 20210614, end: 20210614
  25. DORZOLAMIDE HYDROCHLORIDE\TIMOLOL MALEATE [Concomitant]
     Active Substance: DORZOLAMIDE HYDROCHLORIDE\TIMOLOL MALEATE
     Indication: Ocular hypertension
     Route: 061
     Dates: start: 20211229, end: 20220127
  26. ATORVASTATIN [Concomitant]
     Active Substance: ATORVASTATIN
     Indication: Hypercholesterolaemia
     Route: 048
     Dates: start: 20210610, end: 20210621
  27. ATORVASTATIN [Concomitant]
     Active Substance: ATORVASTATIN
     Route: 048
     Dates: start: 20210621, end: 20210810
  28. ATORVASTATIN [Concomitant]
     Active Substance: ATORVASTATIN
     Route: 048
     Dates: start: 20210810
  29. OFTENSIN [Concomitant]
     Indication: Intraocular pressure increased
     Route: 047
     Dates: start: 20210614, end: 20211229
  30. OFTENSIN [Concomitant]
     Route: 061
     Dates: start: 20210712, end: 20211229
  31. PERINDOPRIL [Concomitant]
     Active Substance: PERINDOPRIL
     Indication: Hypertension
     Route: 048
     Dates: start: 20210621
  32. PERINDOPRIL [Concomitant]
     Active Substance: PERINDOPRIL
     Route: 048
     Dates: start: 20210505, end: 20210507
  33. MAGNE B6 [Concomitant]
     Active Substance: MAGNESIUM\PYRIDOXINE
     Route: 048
     Dates: start: 20210621
  34. ACETAMINOPHEN\TRAMADOL HYDROCHLORIDE [Concomitant]
     Active Substance: ACETAMINOPHEN\TRAMADOL HYDROCHLORIDE
     Indication: Osteoarthritis
     Route: 048
     Dates: start: 20210430
  35. AVOCADO OIL\SOYBEAN OIL [Concomitant]
     Active Substance: AVOCADO OIL\SOYBEAN OIL
     Indication: Osteoarthritis
     Route: 048
     Dates: start: 20210507
  36. METRONIDAZOLE [Concomitant]
     Active Substance: METRONIDAZOLE
     Indication: Helicobacter infection
     Route: 048
     Dates: start: 202109, end: 20211003
  37. IPP (POLAND) [Concomitant]
     Indication: Helicobacter infection
     Route: 048
     Dates: start: 20210924, end: 20211020
  38. ENTEROL (POLAND) [Concomitant]
     Indication: Bacterial disease carrier
     Route: 048
     Dates: start: 20210924, end: 20211003
  39. CONTROLOC [Concomitant]
     Active Substance: PANTOPRAZOLE SODIUM
     Indication: Bacterial disease carrier
     Route: 048
     Dates: start: 20211021, end: 20211114
  40. AMOXICILLIN TRIHYDRATE [Concomitant]
     Active Substance: AMOXICILLIN
     Indication: Bacterial disease carrier
     Route: 048
     Dates: start: 20210924, end: 20211003
  41. LATANOPROST [Concomitant]
     Active Substance: LATANOPROST
     Indication: Ocular hypertension
     Route: 061
     Dates: start: 20220127
  42. CLINDAMYCIN PHOSPHATE [Concomitant]
     Active Substance: CLINDAMYCIN PHOSPHATE
     Route: 061
     Dates: start: 20220215

REACTIONS (2)
  - Coronary artery disease [Recovered/Resolved]
  - Peripheral sensorimotor neuropathy [Recovering/Resolving]

NARRATIVE: CASE EVENT DATE: 20210519
